FAERS Safety Report 20607303 (Version 2)
Quarter: 2022Q2

REPORT INFORMATION
  Report Type: Spontaneous
  Country: US (occurrence: US)
  Receive Date: 20220317
  Receipt Date: 20220612
  Transmission Date: 20220720
  Serious: Yes (Other)
  Sender: FDA-Public Use
  Company Number: US-SA-SAC20220315000939

PATIENT
  Age: 60 Year
  Sex: Male

DRUGS (1)
  1. ZANTAC [Suspect]
     Active Substance: RANITIDINE HYDROCHLORIDE
     Indication: Dyspepsia
     Dosage: OTHER; PERIODS OF NON-USE (AT LEAST 3 MONTHS WITHOUT USE)
     Dates: start: 200812, end: 201412

REACTIONS (2)
  - Skin cancer [Unknown]
  - Prostate cancer stage II [Unknown]

NARRATIVE: CASE EVENT DATE: 20160101
